FAERS Safety Report 5627424-9 (Version None)
Quarter: 2008Q1

REPORT INFORMATION
  Report Type: 
  Country: None (occurrence: None)
  Receive Date: 20080215
  Receipt Date: 20080207
  Transmission Date: 20080703
  Serious: Yes (Death)
  Sender: FDA-Public Use
  Company Number: IN-BAYER-200813077GPV

PATIENT

DRUGS (1)
  1. FLUDARA [Suspect]
     Indication: APLASTIC ANAEMIA
     Route: 042

REACTIONS (1)
  - DEATH [None]
